FAERS Safety Report 6373823 (Version 2)
Quarter: 2012Q4

REPORT INFORMATION
  Report Type: 
  Country: US (occurrence: US)
  Receive Date: 20070802
  Receipt Date: 20121210
  Transmission Date: 20130627
  Serious: Yes (Other)
  Sender: FDA-Public Use
  Company Number: US-JNJFOC-20070800215

PATIENT
  Age: 42 Year
  Sex: Female
  Weight: 145.15 kg

DRUGS (7)
  1. MOTRIN [Suspect]
     Indication: PAIN
     Dosage: for years
  2. TYLENOL COLD HEAD CONGESTION DAYTIME COOL BURST [Suspect]
     Indication: NASOPHARYNGITIS
     Dates: start: 20070731, end: 20070731
  3. NEXIUM [Concomitant]
     Indication: GASTROOESOPHAGEAL REFLUX DISEASE
  4. FERROUS SULFATE [Concomitant]
     Indication: ROUTINE HEALTH MAINTENANCE
  5. DETROL LA [Concomitant]
     Indication: BLADDER DISORDER
  6. HCTZ [Concomitant]
     Indication: DIURETIC THERAPY
  7. VOLTAREN [Concomitant]
     Indication: BLOOD PRESSURE

REACTIONS (5)
  - Pharyngeal oedema [Unknown]
  - Cyanosis [Unknown]
  - Chest pain [Unknown]
  - Dysarthria [Unknown]
  - Eye swelling [Unknown]
